FAERS Safety Report 7214710-4 (Version None)
Quarter: 2011Q1

REPORT INFORMATION
  Report Type: 
  Country: None (occurrence: None)
  Receive Date: 20110107
  Receipt Date: 20091210
  Transmission Date: 20110831
  Serious: No
  Sender: FDA-Public Use
  Company Number: A0834315A

PATIENT
  Age: 55 Year
  Sex: Female

DRUGS (12)
  1. TRIAMTERENE AND HYDROCHLOROTHIAZIDE [Concomitant]
  2. FIORICET [Concomitant]
  3. CRESTOR [Concomitant]
  4. LOVAZA [Suspect]
     Dosage: 2CAP TWICE PER DAY
     Route: 048
     Dates: start: 20091014, end: 20091109
  5. TOPROL-XL [Concomitant]
  6. ALPRAZOLAM [Concomitant]
  7. TRICOR [Concomitant]
  8. RANITIDINE [Concomitant]
  9. METFORMIN [Concomitant]
  10. NEXIUM [Concomitant]
  11. FLUOXETINE [Concomitant]
  12. METOPROLOL [Concomitant]

REACTIONS (1)
  - ALOPECIA [None]
